FAERS Safety Report 24633891 (Version 5)
Quarter: 2025Q3

REPORT INFORMATION
  Report Type: Spontaneous
  Country: US (occurrence: US)
  Receive Date: 20241118
  Receipt Date: 20250812
  Transmission Date: 20251020
  Serious: Yes (Other)
  Sender: LEO PHARM
  Company Number: US-LEO Pharma-375116

PATIENT
  Age: 48 Year
  Sex: Female

DRUGS (1)
  1. ADBRY [Suspect]
     Active Substance: TRALOKINUMAB-LDRM
     Indication: Dermatitis atopic
     Dosage: STARTED FEB 2024
     Dates: start: 20240216

REACTIONS (4)
  - Pigmentation disorder [Unknown]
  - Graves^ disease [Unknown]
  - Dermatitis atopic [Not Recovered/Not Resolved]
  - Drug ineffective [Not Recovered/Not Resolved]
